FAERS Safety Report 8173477-6 (Version None)
Quarter: 2012Q1

REPORT INFORMATION
  Report Type: 
  Country: None (occurrence: None)
  Receive Date: 20120229
  Receipt Date: 20120221
  Transmission Date: 20120608
  Serious: Yes (Other)
  Sender: FDA-Public Use
  Company Number: US-JNJFOC-20120211760

PATIENT

DRUGS (2)
  1. CELEBREX [Concomitant]
  2. XARELTO [Suspect]
     Indication: ILL-DEFINED DISORDER
     Route: 065

REACTIONS (2)
  - RENAL FAILURE [None]
  - GASTROINTESTINAL HAEMORRHAGE [None]
